APPROVED DRUG PRODUCT: OSELTAMIVIR PHOSPHATE
Active Ingredient: OSELTAMIVIR PHOSPHATE
Strength: EQ 30MG BASE
Dosage Form/Route: CAPSULE;ORAL
Application: A217133 | Product #001 | TE Code: AB
Applicant: BEIJING JIALIN PHARMACEUTICAL CO LTD
Approved: Oct 30, 2024 | RLD: No | RS: No | Type: RX